FAERS Safety Report 18568951 (Version 2)
Quarter: 2021Q1

REPORT INFORMATION
  Report Type: Spontaneous
  Country: BR (occurrence: BR)
  Receive Date: 20201202
  Receipt Date: 20210113
  Transmission Date: 20210419
  Serious: Yes (Hospitalization, Other)
  Sender: FDA-Public Use
  Company Number: BR-009507513-2011BRA016478

PATIENT
  Age: 24 Year
  Sex: Female
  Weight: 60 kg

DRUGS (1)
  1. NUVARING [Suspect]
     Active Substance: ETHINYL ESTRADIOL\ETONOGESTREL
     Indication: CONTRACEPTION
     Dosage: 1 RING FOR THREE WEEKS AND 7 DAYS A PAUSE (QM)
     Route: 067
     Dates: start: 2018, end: 201904

REACTIONS (8)
  - Subchorionic haematoma [Unknown]
  - Maternal exposure before pregnancy [Recovered/Resolved]
  - Fatigue [Recovered/Resolved]
  - Amniorrhoea [Recovered/Resolved]
  - Abdominal pain [Recovered/Resolved]
  - Hypotension [Recovered/Resolved]
  - Asthenia [Recovered/Resolved]
  - Product prescribing issue [Unknown]

NARRATIVE: CASE EVENT DATE: 2019
